FAERS Safety Report 7732449-3 (Version None)
Quarter: 2011Q3

REPORT INFORMATION
  Report Type: 
  Country: None (occurrence: None)
  Receive Date: 20110906
  Receipt Date: 20110901
  Transmission Date: 20111222
  Serious: Yes (Death, Other)
  Sender: FDA-Public Use
  Company Number: US-AMGEN-QUU431236

PATIENT
  Age: 63 Year
  Sex: Female
  Weight: 59 kg

DRUGS (6)
  1. ARANESP [Concomitant]
     Dosage: 500 MUG, Q3WK
     Route: 058
     Dates: start: 20100414
  2. CORTICOSTEROID NOS [Concomitant]
  3. PREDNISONE [Concomitant]
     Dosage: 5 MG, QD
     Route: 048
     Dates: start: 20100702
  4. NPLATE [Suspect]
     Indication: IDIOPATHIC THROMBOCYTOPENIC PURPURA
     Dosage: 115 MUG, QWK
     Route: 058
     Dates: start: 20091104
  5. RADIATION THERAPY [Concomitant]
     Dosage: UNK UNK, 3 TIMES/WK
     Dates: start: 20100101
  6. LENALIDOMIDE [Concomitant]
     Dosage: 5 MG, QOD
     Route: 048
     Dates: start: 20091214

REACTIONS (21)
  - BIOPSY BONE MARROW ABNORMAL [None]
  - PLEURAL EFFUSION [None]
  - WEIGHT DECREASED [None]
  - LYMPHADENOPATHY [None]
  - MYELODYSPLASTIC SYNDROME [None]
  - EXTRAMEDULLARY HAEMOPOIESIS [None]
  - SPLENOMEGALY [None]
  - NEPHROLITHIASIS [None]
  - SPLENIC INFARCTION [None]
  - BILIARY DILATATION [None]
  - SCAN ADRENAL GLAND ABNORMAL [None]
  - DEATH [None]
  - ANAEMIA [None]
  - DIVERTICULUM INTESTINAL [None]
  - THERAPEUTIC RESPONSE DECREASED [None]
  - MYELOPROLIFERATIVE DISORDER [None]
  - ABDOMINAL DISTENSION [None]
  - ATELECTASIS [None]
  - URTICARIA [None]
  - PYREXIA [None]
  - ABDOMINAL PAIN [None]
